FAERS Safety Report 11193216 (Version 1)
Quarter: 2015Q2

REPORT INFORMATION
  Report Type: Report from Study
  Country: US (occurrence: None)
  Receive Date: 20150603
  Receipt Date: 20150603
  Transmission Date: 20150821
  Serious: No
  Sender: FDA-Public Use
  Company Number: 2015TASUS000661

PATIENT
  Age: 65 Year
  Sex: Female

DRUGS (9)
  1. LORTAB (HYDROCODONE BITARTRATE, PARACETAMOL, PROMETHAZINE HYDROCHLORIDE) [Concomitant]
  2. SYNTHROID [Concomitant]
     Active Substance: LEVOTHYROXINE SODIUM
  3. BISOPROLOL (BISOPROLOL FUMARATE, HYDROCHLOROTHIAZIDE) [Concomitant]
  4. LISINOPRIL (LISINOPRIL) [Concomitant]
     Active Substance: LISINOPRIL
  5. HETLIOZ [Suspect]
     Active Substance: TASIMELTEON
     Indication: CIRCADIAN RHYTHM SLEEP DISORDER
     Route: 048
     Dates: start: 20141219
  6. GABAPENTIN (GABAPENTIN) [Concomitant]
     Active Substance: GABAPENTIN
  7. CLARITIN [Concomitant]
     Active Substance: LORATADINE
  8. DULOXETINE (DULOXETINE) [Concomitant]
     Active Substance: DULOXETINE
  9. OMEPRAZOLE (OMEPRAZOLE) [Concomitant]
     Active Substance: OMEPRAZOLE

REACTIONS (5)
  - Facial bones fracture [None]
  - Periorbital contusion [None]
  - Contusion [None]
  - Sleep terror [None]
  - Abnormal dreams [None]

NARRATIVE: CASE EVENT DATE: 20150104
